FAERS Safety Report 4933110-0 (Version None)
Quarter: 2006Q1

REPORT INFORMATION
  Report Type: 
  Country: None (occurrence: None)
  Receive Date: 20060306
  Receipt Date: 20051021
  Transmission Date: 20060701
  Serious: Yes (Hospitalization)
  Sender: FDA-Public Use
  Company Number: 2005AP05559

PATIENT
  Age: 28331 Day
  Sex: Female
  Weight: 52 kg

DRUGS (12)
  1. CRESTOR [Suspect]
     Indication: HYPERCHOLESTEROLAEMIA
     Route: 048
     Dates: start: 20051012, end: 20051014
  2. PANALDINE [Suspect]
     Indication: MYOCARDIAL INFARCTION
     Route: 048
     Dates: start: 20050912, end: 20051020
  3. ASPIRIN [Concomitant]
     Indication: MYOCARDIAL INFARCTION
     Route: 048
     Dates: start: 20050912
  4. GASTER D [Concomitant]
     Indication: GASTRITIS
     Route: 048
     Dates: start: 20050914
  5. WARFARIN SODIUM [Concomitant]
     Indication: MYOCARDIAL INFARCTION
     Route: 048
     Dates: start: 20050914
  6. PARAMIDIN [Concomitant]
     Indication: MYOCARDIAL INFARCTION
     Route: 048
     Dates: start: 20050914
  7. RIDAURA [Concomitant]
     Indication: RHEUMATOID ARTHRITIS
     Route: 048
  8. DEANOSARL [Concomitant]
     Indication: DIZZINESS
     Dosage: STARTED BEFORE CRESTOR
     Route: 048
  9. PREDONINE [Concomitant]
     Indication: RHEUMATOID ARTHRITIS
     Dosage: STARTED BEFORE CRESTOR
     Route: 048
  10. BENET [Concomitant]
     Indication: OSTEOPOROSIS
     Route: 048
  11. MAGNESIUM OXIDE [Concomitant]
     Route: 048
  12. RENIVANCE [Concomitant]
     Indication: MYOCARDIAL INFARCTION
     Dosage: STARTED BEFORE CRESTOR
     Route: 048
     Dates: end: 20051014

REACTIONS (4)
  - ALANINE AMINOTRANSFERASE INCREASED [None]
  - ASPARTATE AMINOTRANSFERASE INCREASED [None]
  - FOOD INTERACTION [None]
  - LIVER DISORDER [None]
